FAERS Safety Report 5773197-9 (Version None)
Quarter: 2008Q2

REPORT INFORMATION
  Report Type: 
  Country: None (occurrence: None)
  Receive Date: 20080613
  Receipt Date: 20080613
  Transmission Date: 20081010
  Serious: Yes (Hospitalization)
  Sender: FDA-Public Use
  Company Number: None

PATIENT
  Age: 32 Year
  Sex: Female
  Weight: 54.4316 kg

DRUGS (1)
  1. BOTOX [Suspect]
     Indication: SKIN COSMETIC PROCEDURE
     Dosage: 20 CC
     Dates: start: 20080606, end: 20080606

REACTIONS (9)
  - AMNESIA [None]
  - COLD SWEAT [None]
  - COORDINATION ABNORMAL [None]
  - FACIAL PALSY [None]
  - INFLUENZA [None]
  - INJECTION SITE PAIN [None]
  - MUSCLE SPASMS [None]
  - MUSCULAR WEAKNESS [None]
  - NAUSEA [None]
